FAERS Safety Report 18441573 (Version 1)
Quarter: 2020Q4

REPORT INFORMATION
  Report Type: Not Available
  Country: None (occurrence: None)
  Receive Date: 20201029
  Receipt Date: 20201029
  Transmission Date: 20210114
  Serious: Yes (Death)
  Sender: FDA-Public Use
  Company Number: US-AKORN INC.-154833

PATIENT
  Age: 94 Year
  Sex: Male

DRUGS (1)
  1. ZIOPTAN [Suspect]
     Active Substance: TAFLUPROST

REACTIONS (1)
  - Myocardial infarction [Fatal]
